FAERS Safety Report 5921257-1 (Version None)
Quarter: 2008Q4

REPORT INFORMATION
  Report Type: 
  Country: None (occurrence: None)
  Receive Date: 20081014
  Receipt Date: 20081006
  Transmission Date: 20090506
  Serious: Yes (Hospitalization)
  Sender: FDA-Public Use
  Company Number: 2008SP020422

PATIENT
  Age: 43 Year
  Sex: Male

DRUGS (4)
  1. DIPROSTENE (BETAMETHASONE SODIUM PHOSPHATE/DIPROPIONATE)  (BETAMETHASO [Suspect]
     Indication: BACK PAIN
     Dosage: ONCE;ED
     Route: 008
     Dates: start: 19780424
  2. TEDAROL (TRIAMCINOLONE DIACCETATE) [Suspect]
     Indication: BACK PAIN
     Dosage: 4 ML;ONCE;BID   ONCE
     Dates: start: 19780420
  3. TEDAROL (TRIAMCINOLONE DIACCETATE) [Suspect]
     Indication: BACK PAIN
     Dosage: 4 ML;ONCE;BID   ONCE
     Dates: start: 19780422
  4. ALTIM (CORTIVAZOL) [Suspect]
     Indication: BACK PAIN
     Dosage: ED
     Route: 008
     Dates: start: 19780426

REACTIONS (13)
  - ANAL SPHINCTER ATONY [None]
  - BLADDER DISTENSION [None]
  - DRUG INEFFECTIVE [None]
  - DYSURIA [None]
  - HAEMORRHOIDS [None]
  - HYPOAESTHESIA [None]
  - PAIN IN EXTREMITY [None]
  - PARAPLEGIA [None]
  - PARESIS [None]
  - SENSORY DISTURBANCE [None]
  - SYRINGOMYELIA [None]
  - URINARY INCONTINENCE [None]
  - URINARY RETENTION [None]
